FAERS Safety Report 6787450-3 (Version None)
Quarter: 2010Q2

REPORT INFORMATION
  Report Type: 
  Country: None (occurrence: None)
  Receive Date: 20100623
  Receipt Date: 20070608
  Transmission Date: 20101027
  Serious: No
  Sender: FDA-Public Use
  Company Number: US-PFIZER INC-2007036721

PATIENT
  Sex: Female

DRUGS (3)
  1. DEPO-PROVERA SUSPENSION/INJ [Suspect]
     Indication: CONTRACEPTION
     Dosage: 1ST INJECTION
     Route: 030
     Dates: start: 20061026
  2. DEPO-PROVERA SUSPENSION/INJ [Suspect]
     Dosage: 2ND INJECTION
     Dates: start: 20070118, end: 20070118
  3. DEPO-PROVERA SUSPENSION/INJ [Suspect]
     Dosage: 3RD INJECTION
     Dates: start: 20070410, end: 20070410

REACTIONS (3)
  - CONTUSION [None]
  - SKIN STRIAE [None]
  - WEIGHT INCREASED [None]
